FAERS Safety Report 18453171 (Version 2)
Quarter: 2020Q4

REPORT INFORMATION
  Report Type: Spontaneous
  Country: US (occurrence: US)
  Receive Date: 20201102
  Receipt Date: 20201130
  Transmission Date: 20210114
  Serious: No
  Sender: FDA-Public Use
  Company Number: US-MYLANLABS-2020M1090285

PATIENT
  Age: 56 Year
  Sex: Female
  Weight: 49 kg

DRUGS (3)
  1. PROGESTERONE. [Concomitant]
     Active Substance: PROGESTERONE
     Dosage: UNK, QD (100 MG DAILY.) PILL ONLY
  2. ESTRADIOL TRANSDERMAL SYSTEM [Suspect]
     Active Substance: ESTRADIOL
     Dosage: 0.037 MILLIGRAM, QD
     Route: 062
     Dates: start: 20201025
  3. ESTRADIOL TRANSDERMAL SYSTEM [Suspect]
     Active Substance: ESTRADIOL
     Indication: MENOPAUSE
     Dosage: 0.037 MILLIGRAM, QD
     Route: 062
     Dates: start: 20201016, end: 20201022

REACTIONS (7)
  - Muscle spasms [Recovering/Resolving]
  - Inappropriate schedule of product administration [Unknown]
  - Uterine leiomyoma [Unknown]
  - Vaginal haemorrhage [Recovering/Resolving]
  - Application site irritation [Recovered/Resolved]
  - Breast tenderness [Not Recovered/Not Resolved]
  - Product adhesion issue [Recovered/Resolved]

NARRATIVE: CASE EVENT DATE: 20201016
